FAERS Safety Report 8062243-8 (Version None)
Quarter: 2012Q1

REPORT INFORMATION
  Report Type: 
  Country: None (occurrence: None)
  Receive Date: 20120123
  Receipt Date: 20120118
  Transmission Date: 20120608
  Serious: No
  Sender: FDA-Public Use
  Company Number: US-TEVA-318286USA

PATIENT
  Sex: Female
  Weight: 56.75 kg

DRUGS (2)
  1. PLAN B ONE-STEP [Suspect]
     Indication: POST COITAL CONTRACEPTION
     Dosage: 1.5 MILLIGRAM;
     Route: 048
     Dates: start: 20120113, end: 20120113
  2. MULTI-VITAMIN [Concomitant]
     Indication: MEDICAL DIET
     Route: 048

REACTIONS (2)
  - NAUSEA [None]
  - DYSPEPSIA [None]
